FAERS Safety Report 8863942 (Version 1)
Quarter: 2012Q4

REPORT INFORMATION
  Report Type: 
  Country: US (occurrence: US)
  Receive Date: 20121024
  Receipt Date: 20121024
  Transmission Date: 20130627
  Serious: No
  Sender: FDA-Public Use
  Company Number: US-AMGEN-USASP2011065062

PATIENT
  Age: 32 Year
  Sex: Female
  Weight: 54.42 kg

DRUGS (4)
  1. ENBREL [Suspect]
     Indication: PRODUCT USED FOR UNKNOWN INDICATION
     Dosage: 50 mg, qwk
  2. INDOMETHACIN [Concomitant]
     Dosage: 50 mg, UNK
  3. PANTOPRAZOLE [Concomitant]
     Dosage: 20 mg, UNK
  4. YAZ [Concomitant]

REACTIONS (1)
  - Gastroenteritis viral [Unknown]
